FAERS Safety Report 9852579 (Version 1)
Quarter: 2014Q1

REPORT INFORMATION
  Report Type: Spontaneous
  Country: CA (occurrence: None)
  Receive Date: 20140127
  Receipt Date: 20140127
  Transmission Date: 20141002
  Serious: Yes (Hospitalization)
  Sender: FDA-Public Use
  Company Number: UTC-043522

PATIENT
  Age: 40 Year
  Sex: Male

DRUGS (1)
  1. REMODULIN (5 MILLIGRAM/ MILLILITERS, INJECTION FOR INFUSION) (TREPROSTINIL SODIUM) [Suspect]
     Indication: PULMONARY ARTERIAL HYPERTENSION
     Dosage: 0.022 ML/H
     Route: 058
     Dates: start: 20131029

REACTIONS (2)
  - Pulmonary oedema [None]
  - Decreased appetite [None]
